FAERS Safety Report 13443207 (Version 1)
Quarter: 2017Q2

REPORT INFORMATION
  Report Type: Spontaneous
  Country: ES (occurrence: ES)
  Receive Date: 20170414
  Receipt Date: 20170414
  Transmission Date: 20170830
  Serious: Yes (Hospitalization)
  Sender: FDA-Public Use
  Company Number: ES-AXELLIA-001066

PATIENT
  Age: 48 Year
  Sex: Male

DRUGS (6)
  1. AZTREONAM. [Concomitant]
     Active Substance: AZTREONAM
  2. CEFTOLOZANE [Concomitant]
     Active Substance: CEFTOLOZANE
     Indication: PSEUDOMONAS INFECTION
     Dosage: VENTILATOR-ASSOCIATED INFECTIONS BY COLISTIN-RESISTANT PSEUDOMONAS AERUGINOSA
  3. AZITHROMYCIN ANHYDROUS. [Concomitant]
     Active Substance: AZITHROMYCIN ANHYDROUS
  4. COLISTIN [Suspect]
     Active Substance: COLISTIN
     Indication: PSEUDOMONAS INFECTION
     Dosage: INITIALLY RECEIVED NEBULISED COLISTIN (DOSE:1 MIU IU T.I.D.) FOR 36 DAYS.
     Route: 042
  5. MEROPENEM. [Concomitant]
     Active Substance: MEROPENEM
     Dosage: 1 G T.I.D. IN EXTENDED PERFUSION
  6. TAZOBACTAM/TAZOBACTAM SODIUM [Concomitant]
     Indication: PSEUDOMONAS INFECTION
     Dosage: VENTILATOR-ASSOCIATED INFECTIONS BY COLISTIN-RESISTANT PSEUDOMONAS AERUGINOSA

REACTIONS (2)
  - Acute kidney injury [Recovered/Resolved]
  - Drug resistance [Not Recovered/Not Resolved]
